FAERS Safety Report 22176220 (Version 1)
Quarter: 2023Q2

REPORT INFORMATION
  Report Type: Spontaneous
  Country: GB (occurrence: GB)
  Receive Date: 20230405
  Receipt Date: 20230405
  Transmission Date: 20230722
  Serious: Yes (Other)
  Sender: FDA-Public Use
  Company Number: GB-MYLANLABS-2023M1035895

PATIENT
  Age: 12 Year
  Sex: Female

DRUGS (9)
  1. AZATHIOPRINE [Suspect]
     Active Substance: AZATHIOPRINE
     Indication: Metastatic cutaneous Crohn^s disease
     Dosage: 50 MILLIGRAM, BID
     Route: 065
  2. MOMETASONE [Suspect]
     Active Substance: MOMETASONE
     Indication: Metastatic cutaneous Crohn^s disease
     Dosage: UNK
     Route: 061
  3. FEXOFENADINE [Suspect]
     Active Substance: FEXOFENADINE HYDROCHLORIDE
     Indication: Metastatic cutaneous Crohn^s disease
     Dosage: UNK
     Route: 065
  4. AZITHROMYCIN [Suspect]
     Active Substance: AZITHROMYCIN
     Indication: Metastatic cutaneous Crohn^s disease
     Dosage: UNK
     Route: 065
  5. DOXYCYCLINE [Suspect]
     Active Substance: DOXYCYCLINE
     Indication: Metastatic cutaneous Crohn^s disease
     Dosage: UNK
     Route: 065
  6. BETAMETHASONE [Suspect]
     Active Substance: BETAMETHASONE
     Indication: Metastatic cutaneous Crohn^s disease
     Dosage: UNK
     Route: 061
  7. TACROLIMUS [Suspect]
     Active Substance: TACROLIMUS
     Indication: Metastatic cutaneous Crohn^s disease
     Dosage: UNK
     Route: 061
  8. PREDNISOLONE [Suspect]
     Active Substance: PREDNISOLONE
     Indication: Metastatic cutaneous Crohn^s disease
     Dosage: UNK
     Route: 065
  9. LYMECYCLINE [Suspect]
     Active Substance: LYMECYCLINE
     Indication: Metastatic cutaneous Crohn^s disease
     Dosage: UNK
     Route: 065

REACTIONS (2)
  - Drug ineffective [Unknown]
  - Off label use [Unknown]
